FAERS Safety Report 7527817-9 (Version None)
Quarter: 2011Q2

REPORT INFORMATION
  Report Type: 
  Country: None (occurrence: None)
  Receive Date: 20110607
  Receipt Date: 20110601
  Transmission Date: 20111010
  Serious: Yes (Death, Other)
  Sender: FDA-Public Use
  Company Number: US-AMGEN-USASP2011017762

PATIENT
  Age: 80 Year
  Sex: Male
  Weight: 63.492 kg

DRUGS (6)
  1. NPLATE [Suspect]
     Indication: IDIOPATHIC THROMBOCYTOPENIC PURPURA
     Dosage: 600 A?G, UNK
     Route: 058
     Dates: start: 20101105, end: 20110120
  2. COLACE [Concomitant]
     Dosage: 200 MG, QD
     Route: 048
  3. SYNTHROID [Concomitant]
     Dosage: 50 MG, QD
     Route: 048
  4. KLONOPIN [Concomitant]
     Dosage: 0.5 MG, QD
     Route: 048
  5. PAMELOR [Concomitant]
     Route: 048
  6. COREG [Concomitant]
     Dosage: 12.5 MG, Q12H
     Route: 048

REACTIONS (2)
  - HAEMATURIA [None]
  - DEATH [None]
